FAERS Safety Report 8335332-8 (Version None)
Quarter: 2012Q2

REPORT INFORMATION
  Report Type: 
  Country: None (occurrence: None)
  Receive Date: 20120503
  Receipt Date: 20120430
  Transmission Date: 20120825
  Serious: Yes (Other)
  Sender: FDA-Public Use
  Company Number: US-PFIZER INC-2012106307

PATIENT
  Sex: Female
  Weight: 70.295 kg

DRUGS (15)
  1. TRICOR [Concomitant]
     Indication: BLOOD CHOLESTEROL INCREASED
     Dosage: 145 MG, DAILY
  2. LYRICA [Suspect]
     Dosage: 75 MG, TWO CAPSULES IN THE MORNING AND THREE CAPSULES AT NIGHT
     Dates: start: 20110101
  3. COMBIVENT [Concomitant]
     Indication: ASTHMA
     Dosage: UNK, AS NEEDED
  4. RECLAST [Concomitant]
     Indication: OSTEOPOROSIS
     Dosage: UNK, YEARLY
  5. LYRICA [Suspect]
     Indication: FIBROMYALGIA
     Dosage: UNK
  6. OMEPRAZOLE [Concomitant]
     Indication: ULCER
     Dosage: 20 MG, 2X/DAY
  7. ADVAIR DISKUS 100/50 [Concomitant]
     Indication: ASTHMA
     Dosage: 500/50 UG, 2X/DAY
  8. SINGULAIR [Concomitant]
     Indication: ASTHMA
     Dosage: 10 MG, AS NEEDED
  9. MAGNESIUM [Concomitant]
     Dosage: 500 MG, UNK
  10. IBUPROFEN (ADVIL) [Suspect]
     Indication: BONE DISORDER
     Dosage: 1200 MG, EVERY 6 HOURS
     Dates: start: 20120401
  11. THEOPHYLLINE [Concomitant]
     Indication: ASTHMA
     Dosage: 200 MG, 2X/DAY
  12. TOPIRAMATE [Concomitant]
     Indication: MIGRAINE
     Dosage: 200 MG, 2X/DAY
  13. ALBUTEROL SULFATE [Concomitant]
     Indication: ASTHMA
     Dosage: 4 MG, 3X/DAY
  14. FUROSEMIDE [Concomitant]
     Indication: FLUID RETENTION
     Dosage: 40 MG, DAILY
  15. COLECALCIFEROL [Concomitant]
     Indication: VITAMIN D DEFICIENCY
     Dosage: 50000 IU, 3X/WEEK

REACTIONS (6)
  - IMPAIRED DRIVING ABILITY [None]
  - HEADACHE [None]
  - BONE DISORDER [None]
  - VISUAL IMPAIRMENT [None]
  - SKELETAL INJURY [None]
  - INJURY [None]
